FAERS Safety Report 9913987 (Version 1)
Quarter: 2014Q1

REPORT INFORMATION
  Report Type: Spontaneous
  Country: US (occurrence: None)
  Receive Date: 20140219
  Receipt Date: 20140219
  Transmission Date: 20141002
  Serious: Yes (Other)
  Sender: FDA-Public Use
  Company Number: None

PATIENT
  Age: 55 Year
  Sex: Male
  Weight: 67.13 kg

DRUGS (2)
  1. TOPAMAX [Suspect]
     Indication: BACK PAIN
  2. TRAMADOL [Suspect]

REACTIONS (1)
  - Bone pain [None]
